FAERS Safety Report 10067454 (Version 1)
Quarter: 2014Q2

REPORT INFORMATION
  Report Type: Spontaneous
  Country: GB (occurrence: None)
  Receive Date: 20140407
  Receipt Date: 20140407
  Transmission Date: 20141212
  Serious: Yes (Hospitalization)
  Sender: FDA-Public Use
  Company Number: 2270834

PATIENT
  Age: 53 Year
  Sex: Female

DRUGS (7)
  1. GENTAMICIN SULFATE [Suspect]
     Indication: LOWER RESPIRATORY TRACT INFECTION
     Dosage: 1 DAY, NOT OTHERWISE SPECIFIED
     Route: 042
     Dates: start: 20130916, end: 20130929
  2. AMOXICILLIN [Suspect]
     Dosage: 3 DAY
     Route: 048
     Dates: start: 20130807, end: 20130814
  3. OMEPRAZOLE [Suspect]
     Indication: CHRONIC GASTRITIS
     Dosage: 1 DAY
     Route: 048
     Dates: end: 20130930
  4. PIPERACILLIN SODIUM W/TAZOBACTAM SODIUM [Suspect]
     Indication: CHRONIC OBSTRUCTIVE PULMONARY DISEASE
     Dosage: 3 DAY, NOT OTHERWISE SPECIFIED
     Route: 042
     Dates: start: 20130914, end: 20130925
  5. CIPROFLOXACIN [Concomitant]
  6. OPIOIDS [Concomitant]
  7. LAXATIVE [Concomitant]

REACTIONS (1)
  - Clostridium difficile infection [None]
